FAERS Safety Report 20846490 (Version 3)
Quarter: 2023Q2

REPORT INFORMATION
  Report Type: Report from Study
  Country: AT (occurrence: AT)
  Receive Date: 20220518
  Receipt Date: 20230620
  Transmission Date: 20230721
  Serious: Yes (Death, Hospitalization)
  Sender: FDA-Public Use
  Company Number: AT-JNJFOC-20220140573

PATIENT
  Age: 8 Decade
  Sex: Female
  Weight: 55 kg

DRUGS (10)
  1. MACITENTAN [Suspect]
     Active Substance: MACITENTAN
     Indication: Pulmonary arterial hypertension
     Route: 048
     Dates: start: 20201201, end: 20211231
  2. VENTAVIS [Concomitant]
     Active Substance: ILOPROST
     Indication: Pulmonary arterial hypertension
     Route: 045
     Dates: start: 20200720, end: 20220202
  3. SILDENAFIL [Concomitant]
     Active Substance: SILDENAFIL
     Indication: Pulmonary arterial hypertension
     Dosage: DOSE-60
     Route: 048
     Dates: start: 20200713
  4. ELIQUIS [Concomitant]
     Active Substance: APIXABAN
     Indication: Anticoagulant therapy
     Route: 048
     Dates: start: 20200710
  5. EUTHYROX [Concomitant]
     Active Substance: LEVOTHYROXINE SODIUM
     Indication: Hyperthyroidism
     Route: 048
     Dates: start: 20200710
  6. REMODULIN [Concomitant]
     Active Substance: TREPROSTINIL
     Indication: Pulmonary arterial hypertension
     Dosage: DOSE 6.3 UNIT NOT SPECIFIED
     Dates: start: 20220203
  7. REMODULIN [Concomitant]
     Active Substance: TREPROSTINIL
     Dosage: INTRAVENOUS (I.V.) OR FOR SUBCUTANEOUS (S.C.) USE , 6.3 (UNIT NOT SPECIFIED)
     Dates: start: 20220302, end: 20220731
  8. REMODULIN [Concomitant]
     Active Substance: TREPROSTINIL
     Dosage: INTRAVENOUS (I.V.) OR FOR SUBCUTANEOUS (S.C.) USE DOSE: 37.5 (UNIT NOT SPECIFIED)
     Dates: start: 20220801
  9. IMAGEROLAN [Concomitant]
     Indication: Pulmonary arterial hypertension
     Route: 048
     Dates: start: 20221116
  10. CANRENOATE POTASSIUM [Concomitant]
     Active Substance: CANRENOATE POTASSIUM
     Indication: Mineral supplementation
     Route: 048
     Dates: start: 20220921

REACTIONS (8)
  - Death [Fatal]
  - Cardiac failure [Recovered/Resolved]
  - Catheterisation cardiac [Unknown]
  - Eye contusion [Recovered/Resolved]
  - Fall [Unknown]
  - Diarrhoea [Recovered/Resolved]
  - Asthenia [Recovered/Resolved]
  - Nausea [Recovered/Resolved]

NARRATIVE: CASE EVENT DATE: 20211225
